FAERS Safety Report 8622464-X (Version None)
Quarter: 2012Q3

REPORT INFORMATION
  Report Type: 
  Country: None (occurrence: None)
  Receive Date: 20120827
  Receipt Date: 20120821
  Transmission Date: 20120928
  Serious: Yes (Other)
  Sender: FDA-Public Use
  Company Number: JP-009507513-1208JPN009662

PATIENT

DRUGS (10)
  1. PEG-INTRON [Suspect]
     Dosage: 30 MICROGRAM PER KILOGRAM, QW
     Route: 058
     Dates: start: 20120705
  2. PEG-INTRON [Suspect]
     Indication: HEPATITIS C
     Dosage: 1.5 MICROGRAM PER KILOGRAM, QW
     Route: 058
     Dates: start: 20120614, end: 20120621
  3. PEG-INTRON [Suspect]
     Dosage: 50 MICROGRAM PER KILOGRAM, QW
     Route: 058
     Dates: start: 20120712
  4. PEG-INTRON [Suspect]
     Dosage: 70 MICROGRAM PER KILOGRAM, QW
     Route: 058
     Dates: start: 20120719
  5. REBETOL [Suspect]
     Indication: HEPATITIS C
     Dosage: 400 MG, QD
     Route: 048
     Dates: start: 20120614, end: 20120627
  6. REBETOL [Suspect]
     Dosage: 200 MG, QD
     Route: 048
     Dates: start: 20120705
  7. TELAVIC [Suspect]
     Indication: HEPATITIS C
     Dosage: 1500 MG, QD
     Route: 048
     Dates: start: 20120614, end: 20120627
  8. THEO-DUR [Concomitant]
     Dosage: 100 MG, QD
     Route: 048
  9. LENDORMIN [Concomitant]
     Indication: INSOMNIA
     Dosage: 1 DF, QD
     Route: 048
  10. MUCODYNE [Concomitant]
     Dosage: 500 MG, QD
     Route: 048

REACTIONS (3)
  - DECREASED APPETITE [None]
  - BLOOD URIC ACID INCREASED [None]
  - ANAEMIA [None]
